FAERS Safety Report 20451443 (Version 1)
Quarter: 2022Q1

REPORT INFORMATION
  Report Type: Spontaneous
  Country: GB (occurrence: GB)
  Receive Date: 20220209
  Receipt Date: 20220209
  Transmission Date: 20220423
  Serious: Yes (Hospitalization, Other)
  Sender: FDA-Public Use
  Company Number: GB-GILEAD-2022-0568618

PATIENT
  Age: 67 Year
  Sex: Female

DRUGS (3)
  1. TECARTUS [Suspect]
     Active Substance: BREXUCABTAGENE AUTOLEUCEL
     Indication: Mantle cell lymphoma
     Route: 042
  2. IBRUTINIB [Concomitant]
     Active Substance: IBRUTINIB
  3. VENETOCLAX [Concomitant]
     Active Substance: VENETOCLAX

REACTIONS (6)
  - Polyneuropathy [Recovering/Resolving]
  - Peritonitis [Unknown]
  - Lower respiratory tract infection fungal [Unknown]
  - Immune effector cell-associated neurotoxicity syndrome [Unknown]
  - Cytokine release syndrome [Unknown]
  - Hypogammaglobulinaemia [Unknown]
